FAERS Safety Report 20680604 (Version 2)
Quarter: 2025Q4

REPORT INFORMATION
  Report Type: Spontaneous
  Country: KR (occurrence: KR)
  Receive Date: 20220406
  Receipt Date: 20251117
  Transmission Date: 20260118
  Serious: Yes (Other)
  Sender: MYLAN
  Company Number: KR-PFIZER INC-202200486016

PATIENT
  Sex: Male

DRUGS (1)
  1. XANAX [Suspect]
     Active Substance: ALPRAZOLAM
     Indication: Product used for unknown indication
     Dosage: 0.25MG IN THE MORNING AND 1 DF OF UNSPECIFIED DOSE IN THE EVENING

REACTIONS (4)
  - Mental impairment [Unknown]
  - Lethargy [Unknown]
  - Memory impairment [Unknown]
  - Dysarthria [Unknown]
